FAERS Safety Report 5534492-1 (Version None)
Quarter: 2007Q4

REPORT INFORMATION
  Report Type: 
  Country: None (occurrence: None)
  Receive Date: 20071205
  Receipt Date: 20071123
  Transmission Date: 20080405
  Serious: Yes (Life-Threatening, Hospitalization, Other)
  Sender: FDA-Public Use
  Company Number: FR-BRISTOL-MYERS SQUIBB COMPANY-14000046

PATIENT
  Age: 67 Year
  Sex: Female

DRUGS (6)
  1. CYCLOPHOSPHAMIDE [Suspect]
     Indication: B-CELL LYMPHOMA
     Dosage: DOSAGE : UNK,IV,AS NEEDED-2001 TO 2002; DOSAGE : UNK,IV,NEEDED-2005 TO 2006
     Route: 042
     Dates: start: 20011205, end: 20060418
  2. CYCLOPHOSPHAMIDE [Suspect]
     Indication: BREAST CANCER
     Dosage: DOSAGE : UNK,IV,AS NEEDED-2001 TO 2002; DOSAGE : UNK,IV,NEEDED-2005 TO 2006
     Route: 042
     Dates: start: 20011205, end: 20060418
  3. FARMORUBICIN [Suspect]
     Indication: BREAST CANCER
     Route: 042
     Dates: start: 20011205, end: 20020411
  4. FLUOROURACIL [Suspect]
     Indication: BREAST CANCER
     Route: 042
     Dates: start: 20011205, end: 20020411
  5. ADRIAMYCIN PFS [Suspect]
     Indication: B-CELL LYMPHOMA
     Route: 042
     Dates: start: 20051104, end: 20060418
  6. MABTHERA [Suspect]
     Indication: B-CELL LYMPHOMA
     Route: 042
     Dates: start: 20051104, end: 20060622

REACTIONS (6)
  - B-CELL LYMPHOMA [None]
  - CHOLANGITIS SCLEROSING [None]
  - CHOLESTASIS [None]
  - HEPATIC FIBROSIS [None]
  - LIVER DISORDER [None]
  - OVARIAN CANCER [None]
